FAERS Safety Report 9167413 (Version 2)
Quarter: 2013Q1

REPORT INFORMATION
  Report Type: Spontaneous
  Country: US (occurrence: None)
  Receive Date: 20130305
  Receipt Date: 20130313
  Transmission Date: 20140127
  Serious: Yes (Hospitalization, Other)
  Sender: FDA-Public Use
  Company Number: AUR-APL-2013-01873

PATIENT
  Age: 69 Year
  Sex: Male
  Weight: 75.74 kg

DRUGS (5)
  1. RAMIPRIL [Suspect]
     Indication: CARDIAC DISORDER
     Dosage: 5 MG, 1 D
  2. METOPROLOL (METOPROLOL) [Suspect]
     Indication: CARDIAC DISORDER
  3. BABY ASPIRIN [Suspect]
     Indication: PRODUCT USED FOR UNKNOWN INDICATION
  4. ATORVASTATIN CALCIUM [Suspect]
     Indication: PRODUCT USED FOR UNKNOWN INDICATION
     Dosage: 40 MG, 1 D
     Dates: start: 201210, end: 2012
  5. LIPITOR (ATORVASTATIN CALCIUM) [Suspect]
     Indication: BLOOD CHOLESTEROL INCREASED
     Dates: end: 20121016

REACTIONS (3)
  - Dehydration [None]
  - Thrombosis [None]
  - Dialysis [None]
